FAERS Safety Report 4644125-4 (Version None)
Quarter: 2005Q2

REPORT INFORMATION
  Report Type: 
  Country: None (occurrence: None)
  Receive Date: 20050425
  Receipt Date: 20050421
  Transmission Date: 20051028
  Serious: Yes (Other)
  Sender: FDA-Public Use
  Company Number: 402078

PATIENT

DRUGS (1)
  1. DILATREND [Suspect]
     Route: 048
     Dates: start: 20040720

REACTIONS (2)
  - ASTHENIA [None]
  - SOMNOLENCE [None]
